FAERS Safety Report 5836749-3 (Version None)
Quarter: 2008Q3

REPORT INFORMATION
  Report Type: 
  Country: None (occurrence: None)
  Receive Date: 20080805
  Receipt Date: 20080724
  Transmission Date: 20090109
  Serious: Yes (Death)
  Sender: FDA-Public Use
  Company Number: 2008AL007602

PATIENT
  Age: 76 Year
  Sex: Female

DRUGS (1)
  1. DIGOXIN [Suspect]
     Dosage: 0.125MG DAILY PO
     Route: 048

REACTIONS (3)
  - CARDIAC ARREST [None]
  - URINARY TRACT INFECTION STAPHYLOCOCCAL [None]
  - WOUND INFECTION STAPHYLOCOCCAL [None]
